FAERS Safety Report 21562279 (Version 2)
Quarter: 2022Q4

REPORT INFORMATION
  Report Type: Report from Study
  Country: US (occurrence: US)
  Receive Date: 20221107
  Receipt Date: 20221213
  Transmission Date: 20230113
  Serious: Yes (Other)
  Sender: FDA-Public Use
  Company Number: US-ABBVIE-4156876

PATIENT
  Sex: Male

DRUGS (1)
  1. RINVOQ [Suspect]
     Active Substance: UPADACITINIB
     Indication: Rheumatoid arthritis
     Dosage: FORM STRENGTH: 15 MILLIGRAM?DRUG START DATE: JUL 2022
     Route: 048

REACTIONS (12)
  - Loss of consciousness [Unknown]
  - Feeling cold [Unknown]
  - Joint injury [Unknown]
  - General physical health deterioration [Unknown]
  - Chest pain [Unknown]
  - Nasal congestion [Not Recovered/Not Resolved]
  - Pain [Unknown]
  - Respiratory tract infection [Recovering/Resolving]
  - Joint swelling [Unknown]
  - Cough [Not Recovered/Not Resolved]
  - Dysphonia [Not Recovered/Not Resolved]
  - Dyspnoea [Not Recovered/Not Resolved]

NARRATIVE: CASE EVENT DATE: 20220101
